FAERS Safety Report 5261092-3 (Version None)
Quarter: 2007Q1

REPORT INFORMATION
  Report Type: 
  Country: None (occurrence: None)
  Receive Date: 20070309
  Receipt Date: 20070301
  Transmission Date: 20070707
  Serious: Yes (Death)
  Sender: FDA-Public Use
  Company Number: US-ELI_LILLY_AND_COMPANY-US200703001104

PATIENT
  Age: 40 Year
  Sex: Female

DRUGS (2)
  1. GEMZAR [Suspect]
     Indication: MALIGNANT NEOPLASM PROGRESSION
     Dates: start: 20060606, end: 20061010
  2. TARCEVA [Concomitant]
     Indication: MALIGNANT NEOPLASM PROGRESSION
     Dosage: UNK, UNK
     Dates: start: 20060101, end: 20061103

REACTIONS (1)
  - ACUTE MYELOID LEUKAEMIA RECURRENT [None]
